FAERS Safety Report 4693040-9 (Version None)
Quarter: 2005Q2

REPORT INFORMATION
  Report Type: 
  Country: None (occurrence: None)
  Receive Date: 20050617
  Receipt Date: 20050610
  Transmission Date: 20051028
  Serious: Yes (Hospitalization)
  Sender: FDA-Public Use
  Company Number: PHRM2005FR01812

PATIENT
  Age: 62 Year
  Sex: Female
  Weight: 62 kg

DRUGS (6)
  1. CORTANCYL [Suspect]
     Indication: RHEUMATOID ARTHRITIS
     Dosage: 8 MG/DAY
     Route: 048
  2. ESTRADERM [Suspect]
     Dosage: 1 DF, QW2
     Route: 062
  3. NOVATREX [Suspect]
     Indication: RHEUMATOID ARTHRITIS
     Dosage: 10 MG/WEEK
     Route: 048
     Dates: start: 20010601
  4. REMICADE [Suspect]
     Indication: RHEUMATOID ARTHRITIS
     Dosage: COURSES OF 200 MG/DAY
     Route: 042
     Dates: start: 20010712
  5. SPECIAFOLDINE [Suspect]
     Dosage: 10 MG/WEEK
     Route: 048
     Dates: start: 20010601
  6. DUPHASTON [Suspect]
     Dosage: 10 MG, QD
     Route: 048

REACTIONS (1)
  - INTERSTITIAL LUNG DISEASE [None]
